FAERS Safety Report 6368866-6 (Version None)
Quarter: 2009Q3

REPORT INFORMATION
  Report Type: 
  Country: None (occurrence: None)
  Receive Date: 20090916
  Receipt Date: 20090904
  Transmission Date: 20100115
  Serious: Yes (Hospitalization, Other)
  Sender: FDA-Public Use
  Company Number: 001686

PATIENT
  Sex: Male

DRUGS (2)
  1. LEVODOPA (LEVODOPA) [Suspect]
     Indication: PARKINSON'S DISEASE
     Dosage: (1790 MG) , (150 MG) , (400 MG)
  2. APOMORPHINE (APOMORPHINE) [Suspect]
     Indication: ON AND OFF PHENOMENON
     Dosage: (PARENTERAL)
     Route: 051

REACTIONS (11)
  - AGGRESSION [None]
  - DRUG TOLERANCE [None]
  - DYSTONIA [None]
  - HIGH RISK SEXUAL BEHAVIOUR [None]
  - HYPERSEXUALITY [None]
  - HYPOKINESIA [None]
  - IMMOBILE [None]
  - PHYSICAL ASSAULT [None]
  - PYROMANIA [None]
  - THEFT [None]
  - TRANSVESTISM [None]
